FAERS Safety Report 7444352-7 (Version None)
Quarter: 2011Q2

REPORT INFORMATION
  Report Type: 
  Country: None (occurrence: None)
  Receive Date: 20110429
  Receipt Date: 20110415
  Transmission Date: 20111010
  Serious: Yes (Other)
  Sender: FDA-Public Use
  Company Number: TW-RANBAXY-2011RR-43933

PATIENT
  Age: 54 Year
  Sex: Female

DRUGS (6)
  1. PALIPERIDONE [Concomitant]
     Indication: DEPRESSION
  2. VENLAFAXINE [Suspect]
     Indication: DEPRESSION
     Dosage: 75 MG, UNK
  3. VENLAFAXINE [Suspect]
     Dosage: 225 MG, UNK
  4. ZOLPIDEM [Suspect]
     Indication: INSOMNIA
  5. QUETIAPINE [Suspect]
     Indication: DEPRESSION
     Dosage: 50 MG, UNK
  6. CLONAZEPAM [Suspect]
     Indication: INSOMNIA

REACTIONS (5)
  - DRY MOUTH [None]
  - DRUG INTERACTION [None]
  - POLLAKIURIA [None]
  - DIZZINESS [None]
  - SEDATION [None]
